FAERS Safety Report 4765866-4 (Version None)
Quarter: 2005Q3

REPORT INFORMATION
  Report Type: 
  Country: None (occurrence: None)
  Receive Date: 20050907
  Receipt Date: 20050826
  Transmission Date: 20060218
  Serious: Yes (Death)
  Sender: FDA-Public Use
  Company Number: 2005BI015511

PATIENT
  Age: 67 Year
  Sex: Male
  Weight: 88.4514 kg

DRUGS (5)
  1. AMEVIVE [Suspect]
     Indication: PSORIASIS
     Dosage: 15 MG; QW; IM
     Route: 030
     Dates: start: 20041220, end: 20050310
  2. COUMADIN [Concomitant]
  3. LANOXIN [Concomitant]
  4. GLUCOVANCE [Concomitant]
  5. ZESTRIL [Concomitant]

REACTIONS (5)
  - CHRONIC OBSTRUCTIVE PULMONARY DISEASE [None]
  - INJURY ASPHYXIATION [None]
  - PNEUMONIA [None]
  - RESPIRATORY FAILURE [None]
  - VENTRICULAR DYSFUNCTION [None]
